FAERS Safety Report 4784992-7 (Version None)
Quarter: 2005Q3

REPORT INFORMATION
  Report Type: 
  Country: None (occurrence: None)
  Receive Date: 20050928
  Receipt Date: 20050915
  Transmission Date: 20060218
  Serious: Yes (Other)
  Sender: FDA-Public Use
  Company Number: S05-USA-04393-01

PATIENT
  Age: 53 Year
  Sex: Female

DRUGS (5)
  1. LEXAPRO [Suspect]
     Indication: ANXIETY
     Dosage: 10 MG QD PO
     Route: 048
     Dates: start: 20050908
  2. HUMALOG [Concomitant]
  3. FEMHRT [Concomitant]
  4. LIPITOR [Concomitant]
  5. DITROPAN [Concomitant]

REACTIONS (2)
  - METRORRHAGIA [None]
  - SHOCK HYPOGLYCAEMIC [None]
